FAERS Safety Report 8157581-4 (Version None)
Quarter: 2012Q1

REPORT INFORMATION
  Report Type: 
  Country: None (occurrence: None)
  Receive Date: 20120222
  Receipt Date: 20110718
  Transmission Date: 20120608
  Serious: No
  Sender: FDA-Public Use
  Company Number: US-ASTRAZENECA-2011SE41039

PATIENT
  Sex: Male

DRUGS (2)
  1. TENORMIN [Suspect]
     Indication: CARDIOMYOPATHY
     Route: 048
  2. TENORMIN [Suspect]
     Indication: VENTRICULAR EXTRASYSTOLES
     Route: 048

REACTIONS (2)
  - HYPOAESTHESIA [None]
  - OFF LABEL USE [None]
